FAERS Safety Report 6969594-6 (Version None)
Quarter: 2010Q3

REPORT INFORMATION
  Report Type: 
  Country: None (occurrence: None)
  Receive Date: 20100902
  Receipt Date: 20100826
  Transmission Date: 20110219
  Serious: Yes (Hospitalization, Other)
  Sender: FDA-Public Use
  Company Number: 2010SP046338

PATIENT
  Age: 20 Year
  Sex: Female

DRUGS (1)
  1. SAPHRIS [Suspect]
     Indication: SCHIZOPHRENIA
     Dosage: SL
     Route: 060

REACTIONS (2)
  - FALL [None]
  - HALLUCINATION, AUDITORY [None]
